FAERS Safety Report 14360581 (Version 5)
Quarter: 2022Q1

REPORT INFORMATION
  Report Type: Spontaneous
  Country: PL (occurrence: PL)
  Receive Date: 20180106
  Receipt Date: 20220318
  Transmission Date: 20220423
  Serious: Yes (Life-Threatening, Other)
  Sender: FDA-Public Use
  Company Number: PL-AUROBINDO-AUR-APL-2018-001082

PATIENT
  Age: 46 Year
  Sex: Male

DRUGS (12)
  1. RIBAVIRIN [Suspect]
     Active Substance: RIBAVIRIN
     Indication: Chronic hepatitis C
     Dosage: 1000 MILLIGRAM((3D) +RBV)
     Route: 065
     Dates: start: 20151215, end: 20160107
  2. RIBAVIRIN [Suspect]
     Active Substance: RIBAVIRIN
     Dosage: 1000 MILLIGRAM
     Route: 065
     Dates: start: 20160126
  3. RIBAVIRIN [Suspect]
     Active Substance: RIBAVIRIN
     Dosage: 100 MILLIGRAM, ONCE A DAY
     Route: 065
     Dates: start: 20151215, end: 20160701
  4. RIBAVIRIN [Suspect]
     Active Substance: RIBAVIRIN
     Dosage: 600 MILLIGRAM, ONCE A DAY
     Route: 065
  5. PARITAPREVIR\RITONAVIR [Suspect]
     Active Substance: PARITAPREVIR\RITONAVIR
     Indication: Hepatocellular carcinoma
     Dosage: UNK
     Route: 065
     Dates: start: 20151201
  6. TACROLIMUS [Suspect]
     Active Substance: TACROLIMUS
     Indication: Immunosuppression
     Dosage: 0.5 MILLIGRAM, EVERY WEEK
     Route: 048
  7. TACROLIMUS [Suspect]
     Active Substance: TACROLIMUS
     Indication: Immunosuppressant drug therapy
  8. DASABUVIR [Suspect]
     Active Substance: DASABUVIR
     Indication: Chronic hepatitis C
     Dosage: UNK
     Route: 048
  9. OMBITASVIR [Suspect]
     Active Substance: OMBITASVIR
     Indication: Chronic hepatitis C
     Dosage: (3D) +RBV ()
     Route: 065
     Dates: start: 20151215
  10. PREDNISONE [Concomitant]
     Active Substance: PREDNISONE
     Indication: Immunosuppression
     Dosage: UNK
     Route: 065
  11. DASABUVIR\OMBITASVIR\PARITAPREVIR\RITONAVIR [Concomitant]
     Active Substance: DASABUVIR\OMBITASVIR\PARITAPREVIR\RITONAVIR
     Indication: Hepatocellular carcinoma
     Dosage: UNK
     Route: 065
     Dates: start: 20151201
  12. DASABUVIR\OMBITASVIR\PARITAPREVIR\RITONAVIR [Concomitant]
     Active Substance: DASABUVIR\OMBITASVIR\PARITAPREVIR\RITONAVIR
     Dosage: (3D) +RBV ()
     Route: 065
     Dates: start: 20151215, end: 20160107

REACTIONS (4)
  - Drug ineffective [Unknown]
  - Anaemia [Recovered/Resolved]
  - Drug level increased [Unknown]
  - Drug interaction [Unknown]

NARRATIVE: CASE EVENT DATE: 20160101
